FAERS Safety Report 4414602-X (Version None)
Quarter: 2004Q3

REPORT INFORMATION
  Report Type: 
  Country: None (occurrence: None)
  Receive Date: 20040729
  Receipt Date: 20040714
  Transmission Date: 20050211
  Serious: Yes (Hospitalization)
  Sender: FDA-Public Use
  Company Number: JP-JNJFOC-20040506905

PATIENT
  Age: 62 Year
  Sex: Female
  Weight: 50.7 kg

DRUGS (18)
  1. REMICADE [Suspect]
     Indication: RHEUMATOID ARTHRITIS
     Dosage: 3 MG/KG, 1 IN 1 AS NECESSARY, INTRAVENOUS DRIP
     Route: 041
     Dates: start: 20040301
  2. REMICADE [Suspect]
     Indication: RHEUMATOID ARTHRITIS
     Dosage: 3 MG/KG, 1 IN 1 AS NECESSARY, INTRAVENOUS DRIP
     Route: 041
     Dates: start: 20040315
  3. REMICADE [Suspect]
     Indication: RHEUMATOID ARTHRITIS
     Dosage: 3 MG/KG, 1 IN 1 AS NECESSARY, INTRAVENOUS DRIP
     Route: 041
     Dates: start: 20040414
  4. PREDNISOLONE [Suspect]
     Indication: RHEUMATOID ARTHRITIS
     Dosage: 10 MG, ORAL; 9 MG, ORAL
     Route: 048
     Dates: start: 20030317, end: 20030413
  5. PREDNISOLONE [Suspect]
     Indication: RHEUMATOID ARTHRITIS
     Dosage: 10 MG, ORAL; 9 MG, ORAL
     Route: 048
     Dates: start: 20030414
  6. METHOTREXATE [Concomitant]
  7. VOLTAREN [Concomitant]
  8. HYPEN (ETODOLAC) TABLETS [Concomitant]
  9. LANSOPRAZOLE [Concomitant]
  10. GASTRON (GASTRON) [Concomitant]
  11. AMLODIPINE BESYLATE [Concomitant]
  12. CALCIUM LACTATE (CALCIUM LACTATE) [Concomitant]
  13. GLAKAY (MENATETRENONE) [Concomitant]
  14. ONEALFA (ALFACALCIDOL) [Concomitant]
  15. EPADEL S (ETHYL ICOSAPENTATE) [Concomitant]
  16. ACTONEL [Concomitant]
  17. FERROMIA (FERROUS CITRATE) [Concomitant]
  18. IMURAN [Suspect]
     Indication: RHEUMATOID ARTHRITIS
     Dosage: 75 MG , 1 IN 1 DAY,ORAL
     Dates: start: 20030331, end: 20040522

REACTIONS (6)
  - BLOOD BETA-D-GLUCAN INCREASED [None]
  - DRUG INTERACTION [None]
  - INTERSTITIAL LUNG DISEASE [None]
  - MALAISE [None]
  - PNEUMOCYSTIS CARINII PNEUMONIA [None]
  - RESPIRATORY FAILURE [None]
